FAERS Safety Report 14046910 (Version 2)
Quarter: 2017Q4

REPORT INFORMATION
  Report Type: Spontaneous
  Country: US (occurrence: US)
  Receive Date: 20171005
  Receipt Date: 20171116
  Transmission Date: 20180321
  Serious: No
  Sender: FDA-Public Use
  Company Number: US-009507513-1709USA011958

PATIENT
  Age: 46 Year
  Sex: Female
  Weight: 58.96 kg

DRUGS (2)
  1. NEXPLANON [Suspect]
     Active Substance: ETONOGESTREL
     Indication: CONTRACEPTION
     Dosage: 68MG, 1 ROD EVERY 3 YEARS
     Route: 059
     Dates: start: 20170801
  2. NEXPLANON [Suspect]
     Active Substance: ETONOGESTREL
     Indication: MENORRHAGIA
     Dosage: 1 DF, Q3YRS
     Route: 058
     Dates: start: 20140718, end: 20170801

REACTIONS (9)
  - Hypoaesthesia [Not Recovered/Not Resolved]
  - Product use in unapproved indication [Unknown]
  - Paraesthesia [Not Recovered/Not Resolved]
  - Device deployment issue [Unknown]
  - Amenorrhoea [Unknown]
  - Incorrect drug administration duration [Unknown]
  - Device deployment issue [Not Recovered/Not Resolved]
  - Pain in extremity [Not Recovered/Not Resolved]
  - Burning sensation [Not Recovered/Not Resolved]

NARRATIVE: CASE EVENT DATE: 2017
